FAERS Safety Report 7482145-5 (Version None)
Quarter: 2011Q2

REPORT INFORMATION
  Report Type: 
  Country: None (occurrence: None)
  Receive Date: 20110516
  Receipt Date: 20110509
  Transmission Date: 20111010
  Serious: No
  Sender: FDA-Public Use
  Company Number: US-PFIZER INC-2011099311

PATIENT
  Sex: Female
  Weight: 74.83 kg

DRUGS (4)
  1. AZITHROMYCIN [Suspect]
     Dosage: 250 MG, 1X/DAY
     Dates: start: 20110506, end: 20110507
  2. LEVOXYL [Concomitant]
     Indication: HYPOTHYROIDISM
     Dosage: UNK
     Dates: start: 20080101
  3. NEXIUM [Concomitant]
     Indication: GASTROOESOPHAGEAL REFLUX DISEASE
     Dosage: UNK
     Dates: start: 20080101
  4. AZITHROMYCIN [Suspect]
     Indication: SINUSITIS
     Dosage: 250 MG, 2X/DAY
     Route: 048
     Dates: start: 20110505, end: 20110505

REACTIONS (8)
  - ABDOMINAL PAIN UPPER [None]
  - DIARRHOEA [None]
  - FEELING ABNORMAL [None]
  - NASOPHARYNGITIS [None]
  - CHILLS [None]
  - MALAISE [None]
  - DRUG INEFFECTIVE [None]
  - NAUSEA [None]
